FAERS Safety Report 8828370 (Version 3)
Quarter: 2013Q1

REPORT INFORMATION
  Report Type: Spontaneous
  Country: US (occurrence: US)
  Receive Date: 20121005
  Receipt Date: 20130125
  Transmission Date: 20140127
  Serious: Yes (Other)
  Sender: FDA-Public Use
  Company Number: US-ROCHE-791252

PATIENT
  Age: 30 Year
  Sex: Female
  Weight: 59.02 kg

DRUGS (4)
  1. ACCUTANE [Suspect]
     Indication: ACNE
     Dosage: 40 MG, 80 MG
     Route: 065
     Dates: start: 20000313, end: 200004
  2. ACCUTANE [Suspect]
     Route: 065
     Dates: start: 200004, end: 2001
  3. SPRINTEC [Concomitant]
     Indication: CONTRACEPTION
  4. ORTHO TRI CYCLEN [Concomitant]
     Indication: CONTRACEPTION

REACTIONS (9)
  - Inflammatory bowel disease [Unknown]
  - Proctitis ulcerative [Unknown]
  - Emotional distress [Unknown]
  - Colitis ulcerative [Unknown]
  - Intestinal haemorrhage [Unknown]
  - Depression [Unknown]
  - Dry eye [Unknown]
  - Chapped lips [Unknown]
  - Viral infection [Recovered/Resolved]
